FAERS Safety Report 10281891 (Version 4)
Quarter: 2014Q3

REPORT INFORMATION
  Report Type: Report from Study
  Country: CO (occurrence: CO)
  Receive Date: 20140707
  Receipt Date: 20140714
  Transmission Date: 20150326
  Serious: Yes (Death, Hospitalization)
  Sender: FDA-Public Use
  Company Number: CO-009507513-1407COL002147

PATIENT
  Age: 70 Year
  Sex: Male
  Weight: 63 kg

DRUGS (5)
  1. ENALAPRIL MALEATE. [Concomitant]
     Active Substance: ENALAPRIL MALEATE
     Dosage: TOTAL DIALY DOSE: 40 MG
     Route: 048
     Dates: start: 20111123, end: 20140613
  2. ASPIRIN. [Concomitant]
     Active Substance: ASPIRIN
     Dosage: TOTAL DAILY DOSE: 100 MG
     Route: 048
     Dates: start: 20090804, end: 20140613
  3. HYDROCHLOROTHIAZIDE. [Concomitant]
     Active Substance: HYDROCHLOROTHIAZIDE
     Dosage: TOTAL DAILY DOSE: 25 MG
     Route: 048
     Dates: start: 20090804, end: 20140613
  4. EZETIMIBE AND SIMVASTATIN [Suspect]
     Active Substance: EZETIMIBE\SIMVASTATIN
     Indication: ACUTE CORONARY SYNDROME
     Dosage: UNK
     Route: 048
     Dates: start: 20090811
  5. METOPROLOL [Concomitant]
     Active Substance: METOPROLOL
     Dosage: TOTAL DAILY DOSE: 50 MG
     Route: 048
     Dates: start: 20090804, end: 20140613

REACTIONS (1)
  - Hepatic cancer [Fatal]

NARRATIVE: CASE EVENT DATE: 20140328
